FAERS Safety Report 4733032-4 (Version None)
Quarter: 2005Q3

REPORT INFORMATION
  Report Type: 
  Country: None (occurrence: None)
  Receive Date: 20050801
  Receipt Date: 20050801
  Transmission Date: 20060218
  Serious: Yes (Life-Threatening, Other)
  Sender: FDA-Public Use
  Company Number: None

PATIENT
  Age: 48 Year
  Sex: Male
  Weight: 108.8633 kg

DRUGS (1)
  1. PHENYTOIN [Suspect]
     Dosage: 700 MG, 600 MG ORAL
     Route: 048

REACTIONS (9)
  - ASTHENIA [None]
  - DIZZINESS [None]
  - EXCORIATION [None]
  - LIMB INJURY [None]
  - LOSS OF CONSCIOUSNESS [None]
  - MALAISE [None]
  - ROAD TRAFFIC ACCIDENT [None]
  - SYNCOPE [None]
  - THERAPEUTIC RESPONSE UNEXPECTED WITH DRUG SUBSTITUTION [None]
